FAERS Safety Report 8097222-8 (Version None)
Quarter: 2012Q1

REPORT INFORMATION
  Report Type: 
  Country: None (occurrence: None)
  Receive Date: 20120128
  Receipt Date: 20110617
  Transmission Date: 20120608
  Serious: No
  Sender: FDA-Public Use
  Company Number: US-ABBOTT-11P-163-0733612-00

PATIENT
  Age: 43 Year
  Sex: Female

DRUGS (3)
  1. METHOTREXATE [Concomitant]
     Indication: PRODUCT USED FOR UNKNOWN INDICATION
     Dosage: WEEKLY
     Route: 050
  2. SYNTHROID [Concomitant]
     Indication: HYPOTHYROIDISM
     Dosage: MONDAY-FRIDAY
     Route: 048
  3. HUMIRA [Suspect]
     Indication: CROHN'S DISEASE
     Dates: start: 20110517

REACTIONS (1)
  - INJECTION SITE ERYTHEMA [None]
